FAERS Safety Report 4289956-8 (Version None)
Quarter: 2004Q1

REPORT INFORMATION
  Report Type: 
  Country: None (occurrence: None)
  Receive Date: 20040209
  Receipt Date: 20040116
  Transmission Date: 20041129
  Serious: Yes (Other)
  Sender: FDA-Public Use
  Company Number: FR-ROCHE-356787

PATIENT
  Age: 43 Year
  Sex: Female
  Weight: 60 kg

DRUGS (8)
  1. XENICAL [Suspect]
     Indication: OVERWEIGHT
     Route: 048
  2. XENICAL [Suspect]
     Route: 048
     Dates: start: 20040103, end: 20040105
  3. VENTOLIN [Concomitant]
     Indication: ASTHMA
     Route: 055
  4. LUTERAN [Concomitant]
     Indication: HORMONE LEVEL ABNORMAL
     Route: 048
     Dates: start: 20030801
  5. FORADIL [Concomitant]
     Indication: ASTHMA
     Route: 055
  6. NISISCO [Concomitant]
     Indication: HYPERTENSION
     Dosage: DOSE REPORTED AS 80MG/12.5
     Route: 048
     Dates: start: 20030101
  7. UNKNOWN [Concomitant]
     Indication: ASTHMA
     Dosage: DRUG REPORTED AS MIFLASONE
     Route: 055
  8. ZYBAN [Concomitant]
     Indication: NICOTINE DEPENDENCE
     Route: 048
     Dates: start: 20031201

REACTIONS (1)
  - CROHN'S DISEASE [None]
